FAERS Safety Report 7041433-7 (Version None)
Quarter: 2010Q4

REPORT INFORMATION
  Report Type: 
  Country: None (occurrence: None)
  Receive Date: 20101013
  Receipt Date: 20101012
  Transmission Date: 20110411
  Serious: Yes (Death)
  Sender: FDA-Public Use
  Company Number: IT-ROCHE-730010

PATIENT
  Sex: Female

DRUGS (2)
  1. XELODA [Suspect]
     Indication: BREAST CANCER
     Dosage: ROUTE: OS
     Route: 048
     Dates: start: 20100903, end: 20100908
  2. BRIVUDIN [Suspect]
     Indication: PRODUCT USED FOR UNKNOWN INDICATION
     Dosage: ROUTE: OS
     Route: 048
     Dates: start: 20100903, end: 20100903

REACTIONS (1)
  - BONE MARROW FAILURE [None]
